FAERS Safety Report 4707906-4 (Version None)
Quarter: 2005Q2

REPORT INFORMATION
  Report Type: 
  Country: None (occurrence: None)
  Receive Date: 20050629
  Receipt Date: 20050504
  Transmission Date: 20051028
  Serious: No
  Sender: FDA-Public Use
  Company Number: 05P-163-0299613-00

PATIENT
  Age: 54 Year
  Sex: Female
  Weight: 81.6475 kg

DRUGS (8)
  1. HUMIRA [Suspect]
     Indication: RHEUMATOID ARTHRITIS
     Dosage: 40 MG, 1 IN 2 WK, SUBCUTANEOUS
     Route: 058
     Dates: start: 20050429
  2. METHOTREXATE SODIUM [Concomitant]
  3. FOLIC ACID [Concomitant]
  4. ASCORBIC ACID [Concomitant]
  5. ERGOCALCIFEROL [Concomitant]
  6. MIDRID [Concomitant]
  7. CEPHALEXIN [Concomitant]
  8. RABEPRAZOLE SODIUM [Concomitant]

REACTIONS (3)
  - HEADACHE [None]
  - INJECTION SITE PAIN [None]
  - NAUSEA [None]
